FAERS Safety Report 8256823-4 (Version None)
Quarter: 2012Q2

REPORT INFORMATION
  Report Type: 
  Country: None (occurrence: None)
  Receive Date: 20120403
  Receipt Date: 20120330
  Transmission Date: 20120825
  Serious: Yes (Death, Life-Threatening)
  Sender: FDA-Public Use
  Company Number: PHHY2012FR025264

PATIENT
  Sex: Female

DRUGS (9)
  1. ANTI-THYMOCYTE GLOBULIN RABBIT NOS [Suspect]
     Dosage: UNK UKN, UNK
     Dates: start: 20120109, end: 20120110
  2. TARGOCID [Suspect]
     Dosage: 400 MG, DAILY
     Dates: start: 20111227, end: 20120115
  3. ANTILYMPHOCYTE SERUM [Concomitant]
  4. FLUDARABINE PHOSPHATE [Suspect]
     Indication: STEM CELL TRANSPLANT
     Dosage: UNK UKN, UNK
     Dates: start: 20120105, end: 20120108
  5. VFEND [Suspect]
     Dosage: 400 MG, DAILY
     Dates: start: 20111230, end: 20120115
  6. CORTICOSTEROID NOS [Concomitant]
  7. NEORAL [Suspect]
     Dosage: UNK UKN, UNK
     Dates: start: 20111029, end: 20120115
  8. CYCLOPHOSPHAMIDE [Suspect]
     Indication: STEM CELL TRANSPLANT
     Dosage: 1905 MG, UNK
     Route: 042
     Dates: start: 20120105, end: 20120106
  9. CEFEPIME [Suspect]
     Indication: STEM CELL TRANSPLANT
     Dosage: 6 G, DAILY
     Route: 042
     Dates: start: 20111230, end: 20120115

REACTIONS (14)
  - APHASIA [None]
  - CONFUSIONAL STATE [None]
  - DISORIENTATION [None]
  - NEUROLOGICAL DECOMPENSATION [None]
  - DEATH [None]
  - SUBDURAL HAEMORRHAGE [None]
  - BLOOD CREATININE INCREASED [None]
  - COMA SCALE ABNORMAL [None]
  - DYSKINESIA [None]
  - DIPLEGIA [None]
  - SPEECH DISORDER [None]
  - HYPOTONIA [None]
  - ALTERED STATE OF CONSCIOUSNESS [None]
  - EXTENSOR PLANTAR RESPONSE [None]
